FAERS Safety Report 23455170 (Version 1)
Quarter: 2024Q1

REPORT INFORMATION
  Report Type: Spontaneous
  Country: UA (occurrence: UA)
  Receive Date: 20240130
  Receipt Date: 20240130
  Transmission Date: 20240410
  Serious: Yes (Other)
  Sender: FDA-Public Use
  Company Number: UA-002147023-NVSC2023UA267955

PATIENT
  Age: 84 Year
  Sex: Male

DRUGS (1)
  1. BROLUCIZUMAB [Suspect]
     Active Substance: BROLUCIZUMAB
     Indication: Neovascular age-related macular degeneration
     Dosage: 0.05 ML, Q4W (1 IN 4 WEEKS (LOADING DOSE))
     Route: 031
     Dates: start: 20231207, end: 20231207

REACTIONS (4)
  - Uveitis [Recovered/Resolved]
  - Visual impairment [Recovered/Resolved]
  - Vision blurred [Recovered/Resolved]
  - Hypopyon [Recovered/Resolved]

NARRATIVE: CASE EVENT DATE: 20231211
